FAERS Safety Report 21337579 (Version 1)
Quarter: 2022Q3

REPORT INFORMATION
  Report Type: Spontaneous
  Country: US (occurrence: None)
  Receive Date: 20220915
  Receipt Date: 20220915
  Transmission Date: 20221027
  Serious: No
  Sender: FDA-Public Use
  Company Number: None

PATIENT
  Age: 32 Year
  Sex: Female
  Weight: 60.75 kg

DRUGS (3)
  1. DEXTROAMPHET SACCHARAT, AMPHET ASPARTATE, DEXTROAMPHET SULFATE AND AMP [Suspect]
     Active Substance: AMPHETAMINE ASPARTATE\AMPHETAMINE SULFATE\DEXTROAMPHETAMINE SACCHARATE\DEXTROAMPHETAMINE SULFATE
     Indication: Attention deficit hyperactivity disorder
     Dosage: OTHER QUANTITY : 1 TABLET(S);?
     Route: 048
     Dates: start: 20220817
  2. WELLBUTRINE [Concomitant]
  3. TRAZEDONE [Concomitant]

REACTIONS (10)
  - Drug ineffective [None]
  - Manufacturing issue [None]
  - Product quality issue [None]
  - Nervousness [None]
  - Feeling abnormal [None]
  - Initial insomnia [None]
  - Product physical issue [None]
  - Job dissatisfaction [None]
  - Impaired driving ability [None]
  - Social problem [None]

NARRATIVE: CASE EVENT DATE: 20220913
